FAERS Safety Report 24693481 (Version 1)
Quarter: 2024Q4

REPORT INFORMATION
  Report Type: Spontaneous
  Country: US (occurrence: US)
  Receive Date: 20241203
  Receipt Date: 20241203
  Transmission Date: 20250115
  Serious: No
  Sender: ROCHE
  Company Number: US-ROCHE-10000144716

PATIENT
  Sex: Female

DRUGS (10)
  1. ACTEMRA [Suspect]
     Active Substance: TOCILIZUMAB
     Indication: Osteoporotic fracture
     Route: 058
  2. ESCITALOPRAM [Concomitant]
     Active Substance: ESCITALOPRAM OXALATE
  3. FOLIC ACID [Concomitant]
     Active Substance: FOLIC ACID
  4. ROSUVASTATIN [Concomitant]
     Active Substance: ROSUVASTATIN
  5. METHOTREXATE [Concomitant]
     Active Substance: METHOTREXATE
  6. OHTUVAYRE SUS [Concomitant]
     Dosage: OHTUVAYRE SUS 3MG/2.5ML
  7. ALBUTEROL SU AER 108 [Concomitant]
  8. Breztri Aero AER 160-9-4 [Concomitant]
  9. DUPIXENT SOS [Concomitant]
     Dosage: DUPIXENT SOS 300MG/2ML
  10. ELIQUIS [Concomitant]
     Active Substance: APIXABAN

REACTIONS (3)
  - Headache [Unknown]
  - Hypertension [Unknown]
  - Off label use [Unknown]
